FAERS Safety Report 11174470 (Version 1)
Quarter: 2015Q2

REPORT INFORMATION
  Report Type: Spontaneous
  Country: US (occurrence: None)
  Receive Date: 20150608
  Receipt Date: 20150608
  Transmission Date: 20150821
  Serious: Yes (Hospitalization, Other)
  Sender: FDA-Public Use
  Company Number: None

PATIENT
  Age: 33 Year
  Sex: Female
  Weight: 5.9 kg

DRUGS (1)
  1. EXJADE [Suspect]
     Active Substance: DEFERASIROX
     Indication: IRON OVERLOAD
     Dosage: EXJADE 500MG 3 TABS DAILY PO
     Route: 048
     Dates: start: 20150128, end: 20150401

REACTIONS (2)
  - Therapy cessation [None]
  - Acute chest syndrome [None]

NARRATIVE: CASE EVENT DATE: 201504
